FAERS Safety Report 7507844-8 (Version None)
Quarter: 2011Q2

REPORT INFORMATION
  Report Type: 
  Country: None (occurrence: None)
  Receive Date: 20110527
  Receipt Date: 20110518
  Transmission Date: 20111010
  Serious: No
  Sender: FDA-Public Use
  Company Number: US-BIOGENIDEC-2011BI019405

PATIENT
  Sex: Female

DRUGS (2)
  1. TORDOL [Concomitant]
     Indication: PRODUCT USED FOR UNKNOWN INDICATION
  2. TYSABRI [Suspect]
     Indication: PRODUCT USED FOR UNKNOWN INDICATION
     Route: 042
     Dates: end: 20110415

REACTIONS (3)
  - ANXIETY [None]
  - SUPRAVENTRICULAR TACHYCARDIA [None]
  - URTICARIA [None]
